FAERS Safety Report 17744173 (Version 1)
Quarter: 2020Q2

REPORT INFORMATION
  Report Type: Spontaneous
  Country: ES (occurrence: ES)
  Receive Date: 20200505
  Receipt Date: 20200505
  Transmission Date: 20200714
  Serious: Yes (Hospitalization)
  Sender: FDA-Public Use
  Company Number: ES-ACCORD-180744

PATIENT
  Age: 65 Year
  Sex: Female

DRUGS (4)
  1. PIPERACILLIN TAZOBACTAM SALA [Suspect]
     Active Substance: PIPERACILLIN SODIUM\TAZOBACTAM SODIUM
     Indication: INFECTION
     Dosage: 4 / 0.5 G ,EFG, 50 VIALS
     Route: 042
     Dates: start: 20200118, end: 20200127
  2. PIPERACILLIN/TAZOBACTAM [Suspect]
     Active Substance: PIPERACILLIN SODIUM\TAZOBACTAM SODIUM
     Indication: INFECTION
     Route: 042
     Dates: start: 20191227, end: 20200101
  3. FUROSEMIDE. [Suspect]
     Active Substance: FUROSEMIDE
     Indication: OEDEMA
     Route: 042
     Dates: start: 20191222, end: 20200129
  4. METAMIZOLE [Suspect]
     Active Substance: METAMIZOLE
     Indication: PAIN
     Route: 042
     Dates: start: 20191222, end: 20200129

REACTIONS (2)
  - Hepatitis [Recovered/Resolved]
  - Drug reaction with eosinophilia and systemic symptoms [Recovered/Resolved]

NARRATIVE: CASE EVENT DATE: 20200127
